FAERS Safety Report 8453722 (Version 2)
Quarter: 2013Q1

REPORT INFORMATION
  Report Type: Spontaneous
  Country: US (occurrence: US)
  Receive Date: 20120312
  Receipt Date: 20130228
  Transmission Date: 20140127
  Serious: Yes (Hospitalization, Other)
  Sender: FDA-Public Use
  Company Number: US-ROCHE-1047349

PATIENT
  Age: 32 None
  Sex: Male
  Weight: 102.15 kg

DRUGS (2)
  1. ACCUTANE [Suspect]
     Indication: ACNE
     Route: 065
     Dates: start: 1985, end: 1986
  2. ACCUTANE [Suspect]
     Route: 065
     Dates: start: 1990, end: 1991

REACTIONS (8)
  - Colitis ulcerative [Unknown]
  - Colon cancer [Unknown]
  - Anal fissure [Unknown]
  - Inflammatory bowel disease [Unknown]
  - Depression [Unknown]
  - Injury [Unknown]
  - Intestinal obstruction [Unknown]
  - Intestinal haemorrhage [Unknown]
